FAERS Safety Report 5162345-X (Version None)
Quarter: 2006Q4

REPORT INFORMATION
  Report Type: 
  Country: None (occurrence: None)
  Receive Date: 20061130
  Receipt Date: 20061120
  Transmission Date: 20070319
  Serious: Yes (Other)
  Sender: FDA-Public Use
  Company Number: US-MERCK-0611USA05903

PATIENT
  Sex: Male

DRUGS (6)
  1. PROSCAR [Suspect]
     Indication: BENIGN PROSTATIC HYPERPLASIA
     Route: 048
     Dates: start: 19940101
  2. ALTACE [Concomitant]
     Route: 065
  3. VYTORIN [Concomitant]
     Route: 048
  4. MULTI-VITAMINS [Concomitant]
     Route: 065
  5. ASPIRIN [Concomitant]
     Route: 065
  6. ACIPHEX [Concomitant]
     Route: 065

REACTIONS (4)
  - BLOOD TESTOSTERONE DECREASED [None]
  - CARDIOVASCULAR DISORDER [None]
  - OFF LABEL USE [None]
  - OSTEOPOROSIS [None]
